FAERS Safety Report 9161306 (Version 1)
Quarter: 2013Q1

REPORT INFORMATION
  Report Type: Spontaneous
  Country: US (occurrence: US)
  Receive Date: 20130313
  Receipt Date: 20130313
  Transmission Date: 20140127
  Serious: Yes (Other)
  Sender: FDA-Public Use
  Company Number: US-009507513-1303USA003434

PATIENT
  Age: 44 Year
  Sex: Male

DRUGS (1)
  1. TEMODAR [Suspect]
     Dosage: UNK
     Route: 048
     Dates: end: 20121204

REACTIONS (1)
  - Pancytopenia [Not Recovered/Not Resolved]
